FAERS Safety Report 5354611-X (Version None)
Quarter: 2007Q2

REPORT INFORMATION
  Report Type: 
  Country: None (occurrence: None)
  Receive Date: 20070612
  Receipt Date: 20070531
  Transmission Date: 20071010
  Serious: No
  Sender: FDA-Public Use
  Company Number: US-ASTRAZENECA-2006UW08014

PATIENT
  Sex: Female
  Weight: 56.8 kg

DRUGS (6)
  1. SEROQUEL [Suspect]
     Indication: DEPRESSION
     Dosage: 300MG
     Route: 048
     Dates: start: 20030101, end: 20060501
  2. ABILIFY [Concomitant]
  3. GEODON [Concomitant]
  4. RISPERDAL [Concomitant]
  5. PAXIL [Concomitant]
  6. PROZAC [Concomitant]

REACTIONS (1)
  - DIABETES MELLITUS [None]
